FAERS Safety Report 18393647 (Version 2)
Quarter: 2020Q4

REPORT INFORMATION
  Report Type: Spontaneous
  Country: IT (occurrence: IT)
  Receive Date: 20201016
  Receipt Date: 20201019
  Transmission Date: 20210114
  Serious: Yes (Other)
  Sender: FDA-Public Use
  Company Number: IT-ABBVIE-20K-083-3610706-00

PATIENT
  Age: 72 Year
  Sex: Male
  Weight: 81 kg

DRUGS (2)
  1. PLAQUENIL [Suspect]
     Active Substance: HYDROXYCHLOROQUINE SULFATE
     Indication: PRODUCT USED FOR UNKNOWN INDICATION
     Route: 065
     Dates: start: 20200306, end: 20200312
  2. KALETRA [Suspect]
     Active Substance: LOPINAVIR\RITONAVIR
     Indication: PRODUCT USED FOR UNKNOWN INDICATION
     Dosage: KALETRA 200 MG/50 MG FILM-COATED TABLETS
     Route: 048
     Dates: start: 20200306, end: 20200312

REACTIONS (3)
  - Renal impairment [Unknown]
  - Off label use [Unknown]
  - Hepatic failure [Unknown]

NARRATIVE: CASE EVENT DATE: 20200306
